FAERS Safety Report 9964496 (Version 2)
Quarter: 2014Q1

REPORT INFORMATION
  Report Type: Spontaneous
  Country: US (occurrence: US)
  Receive Date: 20140305
  Receipt Date: 20140321
  Transmission Date: 20141002
  Serious: Yes (Hospitalization, Other)
  Sender: FDA-Public Use
  Company Number: US-JNJFOC-20140301942

PATIENT
  Age: 59 Year
  Sex: Female
  Weight: 75 kg

DRUGS (15)
  1. IMBRUVICA [Suspect]
     Indication: MANTLE CELL LYMPHOMA
     Route: 048
  2. IMBRUVICA [Suspect]
     Indication: MANTLE CELL LYMPHOMA
     Route: 048
     Dates: start: 201312
  3. KLOR-CON [Suspect]
     Indication: ELECTROLYTE SUBSTITUTION THERAPY
     Dates: start: 20121126, end: 201401
  4. LASIX [Suspect]
     Indication: CARDIAC FAILURE CONGESTIVE
     Dates: start: 20130708, end: 201401
  5. ASPIRIN [Concomitant]
     Route: 048
  6. CALCIUM CARBONATE [Concomitant]
     Route: 048
  7. COREG-CR [Concomitant]
     Route: 048
  8. PRISTIQ [Concomitant]
     Route: 048
  9. VASOTEC [Concomitant]
     Route: 048
     Dates: start: 20140304
  10. MULTIVITAMINES [Concomitant]
     Route: 048
  11. ALDACTONE [Concomitant]
     Indication: CARDIAC FAILURE CONGESTIVE
     Route: 048
     Dates: start: 20140114
  12. ULTRAM [Concomitant]
     Route: 048
  13. COUMADIN [Concomitant]
     Route: 048
     Dates: start: 20131217
  14. LACRI-LUBE [Concomitant]
     Route: 047
  15. CARMELLOSE SODIUM [Concomitant]
     Route: 047

REACTIONS (7)
  - Hypotension [Recovered/Resolved]
  - Blood creatinine increased [Recovering/Resolving]
  - Hyperkalaemia [Recovered/Resolved]
  - Bacteraemia [Unknown]
  - Dehydration [Recovered/Resolved]
  - Oral pain [Recovered/Resolved]
  - Diarrhoea [Recovered/Resolved]
